FAERS Safety Report 10216472 (Version 1)
Quarter: 2014Q2

REPORT INFORMATION
  Report Type: Spontaneous
  Country: US (occurrence: US)
  Receive Date: 20140604
  Receipt Date: 20140604
  Transmission Date: 20141212
  Serious: No
  Sender: FDA-Public Use
  Company Number: US-B.I. PHARMACEUTICALS,INC./RIDGEFIELD-2014-BI-22987BP

PATIENT
  Age: 41 Year
  Sex: Female
  Weight: 124 kg

DRUGS (2)
  1. SPIRIVA [Suspect]
     Indication: CHRONIC OBSTRUCTIVE PULMONARY DISEASE
     Dosage: 18 MCG
     Route: 055
     Dates: start: 201312, end: 201403
  2. SERTRALINE [Concomitant]
     Indication: DEPRESSION
     Dosage: 100 MG
     Route: 048

REACTIONS (2)
  - Cataract [Recovered/Resolved]
  - Vision blurred [Recovered/Resolved]
